FAERS Safety Report 7468095-9 (Version None)
Quarter: 2011Q2

REPORT INFORMATION
  Report Type: 
  Country: None (occurrence: None)
  Receive Date: 20110509
  Receipt Date: 20110322
  Transmission Date: 20111010
  Serious: No
  Sender: FDA-Public Use
  Company Number: US-ALEXION-A201100391

PATIENT
  Sex: Female

DRUGS (1)
  1. SOLIRIS [Suspect]
     Indication: PAROXYSMAL NOCTURNAL HAEMOGLOBINURIA
     Dosage: 900 MG, Q2W
     Route: 042

REACTIONS (9)
  - BONE PAIN [None]
  - HEADACHE [None]
  - PYREXIA [None]
  - OROPHARYNGEAL PAIN [None]
  - NAUSEA [None]
  - INFLUENZA LIKE ILLNESS [None]
  - FATIGUE [None]
  - CHEST PAIN [None]
  - BACK PAIN [None]
